FAERS Safety Report 6842668-6 (Version None)
Quarter: 2010Q3

REPORT INFORMATION
  Report Type: 
  Country: None (occurrence: None)
  Receive Date: 20100714
  Receipt Date: 20070802
  Transmission Date: 20110219
  Serious: No
  Sender: FDA-Public Use
  Company Number: US-PFIZER INC-2007065209

PATIENT
  Sex: Male
  Weight: 77.1 kg

DRUGS (7)
  1. CHANTIX [Suspect]
     Indication: SMOKING CESSATION THERAPY
     Dates: start: 20070720, end: 20070728
  2. CHANTIX [Suspect]
     Indication: EX-TOBACCO USER
  3. COREG [Concomitant]
  4. DIGITEK [Concomitant]
  5. ALTACE [Concomitant]
  6. VITAMINS [Concomitant]
  7. PRAVASTATIN [Concomitant]

REACTIONS (5)
  - ABDOMINAL DISCOMFORT [None]
  - ABNORMAL DREAMS [None]
  - INSOMNIA [None]
  - NAUSEA [None]
  - NIGHTMARE [None]
